FAERS Safety Report 26066836 (Version 1)
Quarter: 2025Q4

REPORT INFORMATION
  Report Type: Spontaneous
  Country: US (occurrence: US)
  Receive Date: 20251119
  Receipt Date: 20251119
  Transmission Date: 20260117
  Serious: No
  Sender: SANDOZ
  Company Number: US-SANDOZ-SDZ2025US072755

PATIENT
  Sex: Male

DRUGS (1)
  1. PREDNICARBATE [Suspect]
     Active Substance: PREDNICARBATE
     Indication: Skin laceration
     Dosage: 0.1% / 60 GRM (WHEN NEEDED)
     Route: 065

REACTIONS (2)
  - Therapy cessation [Unknown]
  - Product availability issue [Unknown]

NARRATIVE: CASE EVENT DATE: 20250101
